FAERS Safety Report 18217940 (Version 1)
Quarter: 2020Q3

REPORT INFORMATION
  Report Type: Spontaneous
  Country: US (occurrence: US)
  Receive Date: 20200831
  Receipt Date: 20200831
  Transmission Date: 20201103
  Serious: Yes (Hospitalization)
  Sender: FDA-Public Use
  Company Number: None

PATIENT
  Age: 79 Year
  Sex: Male
  Weight: 59 kg

DRUGS (1)
  1. PREDNISONE (PREDNISONE 20MG TAB) [Suspect]
     Active Substance: PREDNISONE
     Indication: CHRONIC OBSTRUCTIVE PULMONARY DISEASE
     Dates: start: 20200516, end: 20200520

REACTIONS (7)
  - Suicidal ideation [None]
  - Oesophageal motility disorder [None]
  - Pneumonia aspiration [None]
  - Hypophagia [None]
  - Gastrooesophageal reflux disease [None]
  - Dyspnoea [None]
  - Insomnia [None]

NARRATIVE: CASE EVENT DATE: 20200520
